FAERS Safety Report 6276036-5 (Version None)
Quarter: 2009Q3

REPORT INFORMATION
  Report Type: 
  Country: None (occurrence: None)
  Receive Date: 20090722
  Receipt Date: 20090709
  Transmission Date: 20100115
  Serious: Yes (Other)
  Sender: FDA-Public Use
  Company Number: TR-RANBAXY-2009RR-25645

PATIENT
  Age: 55 Year
  Sex: Female

DRUGS (2)
  1. MIDAZOLAM HCL [Suspect]
     Indication: SEDATION
     Dosage: 2 MG, UNK
     Route: 042
  2. LIDOCAINE [Concomitant]
     Indication: LOCAL ANAESTHESIA
     Dosage: UNK

REACTIONS (1)
  - PAROTITIS [None]
